FAERS Safety Report 25918818 (Version 1)
Quarter: 2025Q4

REPORT INFORMATION
  Report Type: Spontaneous
  Country: JP (occurrence: CA)
  Receive Date: 20251014
  Receipt Date: 20251014
  Transmission Date: 20260117
  Serious: Yes (Other)
  Sender: RANBAXY
  Company Number: JP-SUN PHARMACEUTICAL INDUSTRIES LTD-2025R1-531341

PATIENT
  Age: 8 Decade
  Sex: Female

DRUGS (1)
  1. QUETIAPINE [Suspect]
     Active Substance: QUETIAPINE
     Indication: Psychiatric symptom
     Dosage: 12.5 MILLIGRAM, QD
     Route: 065

REACTIONS (2)
  - Cognitive disorder [Recovering/Resolving]
  - Sleep disorder [Recovering/Resolving]
